FAERS Safety Report 6463627-1 (Version None)
Quarter: 2009Q4

REPORT INFORMATION
  Report Type: 
  Country: None (occurrence: None)
  Receive Date: 20091201
  Receipt Date: 20091118
  Transmission Date: 20100525
  Serious: Yes (Other)
  Sender: FDA-Public Use
  Company Number: PHHY2009JP44482

PATIENT
  Sex: Male
  Weight: 50 kg

DRUGS (5)
  1. COMTAN CMT+TAB [Suspect]
     Indication: PARKINSON'S DISEASE
     Dosage: 200 MG,DAILY
     Route: 048
     Dates: start: 20080814, end: 20080910
  2. COMTAN CMT+TAB [Suspect]
     Dosage: 400 MG, DAILY
     Route: 048
  3. CARBIDOPA AND LEVODOPA [Concomitant]
     Dosage: 300 MG
     Route: 048
     Dates: start: 20070405
  4. SELEGILINE HCL [Concomitant]
     Dosage: 2.5 MG
     Route: 048
     Dates: start: 20070405
  5. CABASER [Concomitant]
     Dosage: 0.25 MG
     Route: 048
     Dates: start: 20070405

REACTIONS (2)
  - HEPATIC FUNCTION ABNORMAL [None]
  - SUDDEN ONSET OF SLEEP [None]
